FAERS Safety Report 15865704 (Version 3)
Quarter: 2019Q1

REPORT INFORMATION
  Report Type: Report from Study
  Country: GB (occurrence: GB)
  Receive Date: 20190125
  Receipt Date: 20190208
  Transmission Date: 20190417
  Serious: Yes (Hospitalization)
  Sender: FDA-Public Use
  Company Number: GB-CELLTRION INC.-2019GB018017

PATIENT

DRUGS (10)
  1. SALBUTAMOL [Concomitant]
     Active Substance: ALBUTEROL
     Dosage: UNK
  2. TRUXIMA [Suspect]
     Active Substance: RITUXIMAB-ABBS
     Dosage: 800MG 3 WEEKLY IV AS PART OF 6 CYCLE CHEMOTHERAPY
     Route: 042
     Dates: start: 20180814, end: 20180814
  3. TRUXIMA [Suspect]
     Active Substance: RITUXIMAB-ABBS
     Indication: DIFFUSE LARGE B-CELL LYMPHOMA
     Dosage: 800MG 3 WEEKLY IV AS PART OF 6 CYCLE CHEMOTHERAPY
     Route: 042
     Dates: start: 20180501, end: 20180501
  4. PREDNISOLONE. [Concomitant]
     Active Substance: PREDNISOLONE
     Dosage: UNK
  5. TRUXIMA [Suspect]
     Active Substance: RITUXIMAB-ABBS
     Dosage: 800MG 3 WEEKLY IV AS PART OF 6 CYCLE CHEMOTHERAPY
     Route: 042
     Dates: start: 20180522, end: 20180522
  6. TRUXIMA [Suspect]
     Active Substance: RITUXIMAB-ABBS
     Dosage: 800MG 3 WEEKLY IV AS PART OF 6 CYCLE CHEMOTHERAPY
     Route: 042
     Dates: start: 20180824, end: 20180824
  7. GABAPENTIN. [Concomitant]
     Active Substance: GABAPENTIN
  8. TRUXIMA [Suspect]
     Active Substance: RITUXIMAB-ABBS
     Dosage: 800MG 3 WEEKLY IV AS PART OF 6 CYCLE CHEMOTHERAPY
     Route: 042
     Dates: start: 20180612, end: 20180612
  9. CLENIL MODULITE [Concomitant]
     Active Substance: BECLOMETHASONE DIPROPIONATE
     Dosage: UNK
  10. TRUXIMA [Suspect]
     Active Substance: RITUXIMAB-ABBS
     Dosage: 800MG 3 WEEKLY IV AS PART OF 6 CYCLE CHEMOTHERAPY
     Route: 042
     Dates: start: 20180703, end: 20180703

REACTIONS (3)
  - Haematuria [Not Recovered/Not Resolved]
  - Bladder hypertrophy [Not Recovered/Not Resolved]
  - Nephrolithiasis [Not Recovered/Not Resolved]

NARRATIVE: CASE EVENT DATE: 20180706
